FAERS Safety Report 24671740 (Version 2)
Quarter: 2025Q1

REPORT INFORMATION
  Report Type: Spontaneous
  Country: AT (occurrence: AT)
  Receive Date: 20241127
  Receipt Date: 20250113
  Transmission Date: 20250409
  Serious: Yes (Hospitalization, Other)
  Sender: TEVA
  Company Number: AT-EMA-DD-20241107-7482675-053846

PATIENT
  Age: 83 Year
  Sex: Female
  Weight: 59 kg

DRUGS (17)
  1. EXEMESTANE [Suspect]
     Active Substance: EXEMESTANE
     Indication: Breast cancer
     Dosage: QD
     Route: 048
     Dates: start: 20220826
  2. ATORVASTATIN [Concomitant]
     Active Substance: ATORVASTATIN
     Indication: Prophylaxis
     Route: 048
     Dates: start: 20230316
  3. ROSUVASTATIN [Concomitant]
     Active Substance: ROSUVASTATIN
     Indication: Prophylaxis
     Route: 048
     Dates: start: 20220329
  4. EUTHYROX [Concomitant]
     Active Substance: LEVOTHYROXINE SODIUM
     Indication: Hypothyroidism
     Route: 048
     Dates: start: 20100101
  5. PALBOCICLIB [Suspect]
     Active Substance: PALBOCICLIB
     Indication: Breast cancer
     Dosage: QD
     Route: 048
     Dates: start: 20220302, end: 20220523
  6. PALBOCICLIB [Suspect]
     Active Substance: PALBOCICLIB
     Indication: Breast cancer
     Dosage: QD
     Route: 048
     Dates: start: 20220608, end: 20220628
  7. PALBOCICLIB [Suspect]
     Active Substance: PALBOCICLIB
     Indication: Breast cancer
     Route: 048
     Dates: start: 20220728
  8. MAXI KALZ [Concomitant]
     Indication: Prophylaxis
     Route: 048
     Dates: start: 20180328
  9. PANTOPRAZOLE SODIUM [Concomitant]
     Active Substance: PANTOPRAZOLE SODIUM
     Indication: Prophylaxis
     Route: 048
     Dates: start: 20180328
  10. SPIRONOLACTONE [Concomitant]
     Active Substance: SPIRONOLACTONE
     Indication: Hypertension
     Route: 048
     Dates: start: 20180328, end: 20220530
  11. Ramipril Telmisartan [Concomitant]
     Indication: Hypertension
     Route: 048
     Dates: start: 20180328, end: 20220530
  12. ASPIRIN [Concomitant]
     Active Substance: ASPIRIN
     Indication: Prophylaxis
     Route: 048
     Dates: start: 20160128
  13. LETROZOLE [Suspect]
     Active Substance: LETROZOLE
     Indication: Breast cancer
     Dosage: QD
     Route: 048
     Dates: start: 20220302, end: 20220824
  14. LETROZOLE [Suspect]
     Active Substance: LETROZOLE
     Indication: Breast cancer
     Route: 065
     Dates: start: 20220825, end: 20220825
  15. FUROSEMIDE [Concomitant]
     Active Substance: FUROSEMIDE
     Indication: Hypertension
     Route: 048
     Dates: start: 20180328, end: 20220530
  16. BISOPROLOL [Concomitant]
     Active Substance: BISOPROLOL
     Indication: Hypertension
     Route: 065
     Dates: start: 20220531, end: 20220704
  17. BISOPROLOL [Concomitant]
     Active Substance: BISOPROLOL
     Indication: Hypertension
     Route: 048
     Dates: start: 20160128, end: 20220530

REACTIONS (12)
  - Atrial fibrillation [Not Recovered/Not Resolved]
  - Urinary tract infection [Unknown]
  - Laboratory test abnormal [Unknown]
  - Asthenia [Unknown]
  - Cardiac failure [Recovered/Resolved]
  - Oedema peripheral [Unknown]
  - Hyperuricaemia [Unknown]
  - Cardiac failure [Recovered/Resolved]
  - Headache [Recovering/Resolving]
  - Renal impairment [Unknown]
  - Dizziness [Unknown]
  - Cardiac failure [Unknown]

NARRATIVE: CASE EVENT DATE: 20240426
